FAERS Safety Report 24343893 (Version 1)
Quarter: 2024Q3

REPORT INFORMATION
  Report Type: Spontaneous
  Country: US (occurrence: US)
  Receive Date: 20240920
  Receipt Date: 20240920
  Transmission Date: 20241016
  Serious: Yes (Other)
  Sender: PFIZER
  Company Number: US-BRISTOL-MYERS SQUIBB COMPANY-2024-147602

PATIENT
  Age: 59 Year
  Sex: Female
  Weight: 65.7 kg

DRUGS (4)
  1. ELIQUIS [Suspect]
     Active Substance: APIXABAN
     Dosage: 5 MG
     Route: 048
     Dates: start: 20240628
  2. IBRANCE [Suspect]
     Active Substance: PALBOCICLIB
     Indication: Breast cancer female
     Dosage: TAKE 1 TABLET (100 MG TOTAL) BY MOUTH DAILY FOR 21 DOSES WITH FOOD-ORAL
     Route: 048
     Dates: start: 20240820, end: 20240821
  3. IBRANCE [Suspect]
     Active Substance: PALBOCICLIB
     Dosage: TAKE 1 TABLET (100 MG TOTAL) BY MOUTH DAILY FOR 84 DOSES WITH FOOD
     Route: 048
     Dates: start: 20240823
  4. FULVESTRANT [Concomitant]
     Active Substance: FULVESTRANT
     Indication: Breast cancer metastatic
     Dosage: UNK
     Dates: start: 20231108

REACTIONS (2)
  - Mixed hepatocellular cholangiocarcinoma [Unknown]
  - Bone cancer [Unknown]
